FAERS Safety Report 5153909-8 (Version None)
Quarter: 2006Q4

REPORT INFORMATION
  Report Type: 
  Country: None (occurrence: None)
  Receive Date: 20061120
  Receipt Date: 20060627
  Transmission Date: 20070319
  Serious: Yes (Hospitalization)
  Sender: FDA-Public Use
  Company Number: CHWYE842927JUN06

PATIENT
  Sex: Female

DRUGS (3)
  1. ENBREL [Suspect]
     Indication: ANKYLOSING SPONDYLITIS
     Route: 058
     Dates: start: 20060516, end: 20060619
  2. ENBREL [Suspect]
     Route: 058
     Dates: start: 20060627, end: 20060712
  3. ENBREL [Suspect]
     Route: 058
     Dates: start: 20060731, end: 20060927

REACTIONS (14)
  - ANKYLOSING SPONDYLITIS [None]
  - COGNITIVE DISORDER [None]
  - DIPLOPIA [None]
  - DISEASE RECURRENCE [None]
  - DRUG EFFECT DECREASED [None]
  - GAIT DISTURBANCE [None]
  - HAEMATURIA [None]
  - LYMPHADENOPATHY [None]
  - MULTIPLE SCLEROSIS [None]
  - NEPHROLITHIASIS [None]
  - PARAESTHESIA [None]
  - SLEEP DISORDER DUE TO GENERAL MEDICAL CONDITION, INSOMNIA TYPE [None]
  - TREMOR [None]
  - UPPER RESPIRATORY TRACT INFECTION [None]
